FAERS Safety Report 8704811 (Version 3)
Quarter: 2013Q3

REPORT INFORMATION
  Report Type: Report from Study
  Country: JP (occurrence: JP)
  Receive Date: 20120803
  Receipt Date: 20130724
  Transmission Date: 20140515
  Serious: Yes (Hospitalization)
  Sender: FDA-Public Use
  Company Number: JP-009507513-1207JPN012624

PATIENT
  Age: 61 Year
  Sex: Female
  Weight: 47 kg

DRUGS (8)
  1. PEGINTRON [Suspect]
     Indication: CHRONIC HEPATITIS C
     Dosage: 1.5 MICROGRAM PER KILOGRAM, QW
     Route: 058
     Dates: start: 20120614
  2. REBETOL [Suspect]
     Indication: CHRONIC HEPATITIS C
     Dosage: 600 MG, QD (MORNING 200, EVENING 400)
     Route: 048
     Dates: start: 20120614, end: 20120913
  3. REBETOL [Suspect]
     Dosage: 200 MG, QD
     Route: 048
  4. TELAVIC [Suspect]
     Indication: CHRONIC HEPATITIS C
     Dosage: 1500,MG, QD
     Route: 048
     Dates: start: 20120614
  5. URSO [Concomitant]
     Indication: CHRONIC HEPATITIS C
     Dosage: 600 MG, QD
     Route: 048
  6. LOXONIN [Concomitant]
     Dosage: UNK
     Route: 048
     Dates: start: 20120719
  7. ZYLORIC [Concomitant]
     Indication: PROPHYLAXIS
     Dosage: 100 MG 2 TABLETS, BID
     Route: 048
     Dates: start: 20120618
  8. ZYLORIC [Concomitant]
     Dosage: 200 MG, QD
     Route: 048
     Dates: start: 20120705

REACTIONS (2)
  - Blood uric acid increased [Recovered/Resolved]
  - Rash [Recovering/Resolving]
